FAERS Safety Report 17122867 (Version 1)
Quarter: 2019Q4

REPORT INFORMATION
  Report Type: Spontaneous
  Country: FR (occurrence: FR)
  Receive Date: 20191206
  Receipt Date: 20191206
  Transmission Date: 20200122
  Serious: Yes (Other)
  Sender: FDA-Public Use
  Company Number: FR-MYLANLABS-2019M1119261

PATIENT
  Age: 95 Year
  Sex: Female
  Weight: 65 kg

DRUGS (11)
  1. CALCIPARINE [Suspect]
     Active Substance: HEPARIN CALCIUM
     Indication: PROPHYLAXIS
     Dosage: 2 DOSAGE FORM, QD
     Route: 058
     Dates: start: 20190612, end: 20190706
  2. PANTOPRAZOLE MYLAN 20 MG, COMPRIM? GASTRO-R?SISTANT [Suspect]
     Active Substance: PANTOPRAZOLE SODIUM
     Indication: PRODUCT USED FOR UNKNOWN INDICATION
     Dosage: 1 DOSAGE FORM, QD
     Route: 048
     Dates: start: 20190623, end: 20190702
  3. IPERTEN [Concomitant]
     Active Substance: MANIDIPINE
     Dosage: UNK
  4. ENDOXAN                            /00021101/ [Suspect]
     Active Substance: CYCLOPHOSPHAMIDE
     Indication: PLASMA CELL MYELOMA
     Dosage: 250 MILLIGRAM, TOTAL
     Route: 048
     Dates: start: 20190628, end: 20190628
  5. ADENURIC [Concomitant]
     Active Substance: FEBUXOSTAT
     Dosage: UNK
  6. FUROSEMIDE. [Concomitant]
     Active Substance: FUROSEMIDE
     Dosage: UNK
  7. VASTAREL [Concomitant]
     Active Substance: TRIMETAZIDINE DIHYDROCHLORIDE
     Dosage: UNK
  8. BISOCE 2,5 MG, COMPRIM? PELLICUL? S?CABLE [Suspect]
     Active Substance: BISOPROLOL FUMARATE
     Indication: HYPERTENSION
     Dosage: 1 DOSAGE FORM, QD
     Dates: start: 20190625, end: 20190706
  9. TEMESTA                            /00273201/ [Concomitant]
     Active Substance: LORAZEPAM
     Dosage: UNK
  10. VELCADE [Suspect]
     Active Substance: BORTEZOMIB
     Indication: PLASMA CELL MYELOMA
     Dosage: 1.3 MILLIGRAM/SQ. METER, TOTAL
     Route: 042
     Dates: start: 20190628, end: 20190628
  11. NEOFORDEX [Suspect]
     Active Substance: DEXAMETHASONE ACETATE
     Indication: PLASMA CELL MYELOMA
     Dosage: 0.5 DOSAGE FORM, TOTAL
     Dates: start: 20190628, end: 20190628

REACTIONS (3)
  - Erythema [Recovered/Resolved]
  - Pruritus [Recovered/Resolved]
  - Eosinophilia [Recovered/Resolved]

NARRATIVE: CASE EVENT DATE: 20190630
